FAERS Safety Report 26061203 (Version 1)
Quarter: 2025Q4

REPORT INFORMATION
  Report Type: Other
  Country: US (occurrence: US)
  Receive Date: 20251118
  Receipt Date: 20251118
  Transmission Date: 20260118
  Serious: Yes (Hospitalization, Other)
  Sender: HLS THERAPEUTICS
  Company Number: US-HLS-202500390

PATIENT
  Age: 75 Year
  Sex: Male

DRUGS (1)
  1. CLOZAPINE [Suspect]
     Active Substance: CLOZAPINE
     Indication: Schizophrenia
     Route: 048

REACTIONS (6)
  - Psychiatric symptom [Recovered/Resolved]
  - Peritonitis [Unknown]
  - Corynebacterium infection [Recovered/Resolved]
  - Gastric perforation [Recovered/Resolved]
  - Nutritional condition abnormal [Unknown]
  - Post procedural sepsis [Recovered/Resolved]
